FAERS Safety Report 18796518 (Version 2)
Quarter: 2021Q1

REPORT INFORMATION
  Report Type: Report from Study
  Country: ZA (occurrence: ZA)
  Receive Date: 20210127
  Receipt Date: 20210131
  Transmission Date: 20210419
  Serious: Yes (Other)
  Sender: FDA-Public Use
  Company Number: ZA-JNJFOC-20210134702

PATIENT
  Age: 32 Year
  Sex: Female

DRUGS (10)
  1. RILPIVIRINE [Suspect]
     Active Substance: RILPIVIRINE
     Route: 030
     Dates: start: 20190912
  2. ABACAVIR SULFATE;DOLUTEGRAVIR SODIUM;LAMIVUDINE [Suspect]
     Active Substance: ABACAVIR SULFATE\DOLUTEGRAVIR SODIUM\LAMIVUDINE
     Indication: HIV INFECTION
     Dosage: 1 DF, 1D
     Route: 048
     Dates: start: 20170320, end: 20170806
  3. PETOGEN [Concomitant]
     Indication: CONTRACEPTION
     Dosage: 150 MG, Z(Q3M)
     Route: 030
     Dates: start: 20190218
  4. RILPIVIRINE [Suspect]
     Active Substance: RILPIVIRINE
     Indication: HIV INFECTION
     Route: 048
     Dates: start: 20190710, end: 20190814
  5. CABOTEGRAVIR [Suspect]
     Active Substance: CABOTEGRAVIR
     Indication: HIV INFECTION
  6. CABOTEGRAVIR [Suspect]
     Active Substance: CABOTEGRAVIR
     Indication: HIV INFECTION
     Route: 030
     Dates: start: 20190815, end: 20190815
  7. ABACAVIR SULFATE;DOLUTEGRAVIR SODIUM;LAMIVUDINE [Suspect]
     Active Substance: ABACAVIR SULFATE\DOLUTEGRAVIR SODIUM\LAMIVUDINE
     Dosage: 1 DF, 1D
     Route: 048
     Dates: start: 20170807, end: 20190709
  8. CABOTEGRAVIR [Suspect]
     Active Substance: CABOTEGRAVIR
     Indication: HIV INFECTION
     Dosage: 1 DF, 1D
     Route: 048
     Dates: start: 20190710, end: 20190814
  9. RILPIVIRINE [Suspect]
     Active Substance: RILPIVIRINE
     Indication: HIV INFECTION
     Route: 030
     Dates: start: 20190815, end: 20190815
  10. CABOTEGRAVIR [Suspect]
     Active Substance: CABOTEGRAVIR
     Route: 030
     Dates: start: 20190912

REACTIONS (1)
  - Accidental exposure to product [Recovered/Resolved]

NARRATIVE: CASE EVENT DATE: 20201105
